FAERS Safety Report 6341754-7 (Version None)
Quarter: 2009Q3

REPORT INFORMATION
  Report Type: 
  Country: None (occurrence: None)
  Receive Date: 20090904
  Receipt Date: 20090827
  Transmission Date: 20100115
  Serious: Yes (Other)
  Sender: FDA-Public Use
  Company Number: PHHY2009RU28112

PATIENT
  Age: 72 Year
  Sex: Female

DRUGS (3)
  1. MIACALCIN [Suspect]
     Dosage: 200IU  FOR EVERY 2 MONTHS ON EVERY OTHER DAY
     Route: 045
     Dates: end: 20090623
  2. GLUCOSAMINE [Concomitant]
  3. HOMEOPATIC PREPARATION [Concomitant]
     Indication: AUTOIMMUNE THYROIDITIS

REACTIONS (2)
  - ANTI-THYROID ANTIBODY POSITIVE [None]
  - BLOOD THYROID STIMULATING HORMONE INCREASED [None]
